FAERS Safety Report 7266864-1 (Version None)
Quarter: 2011Q1

REPORT INFORMATION
  Report Type: 
  Country: None (occurrence: None)
  Receive Date: 20110201
  Receipt Date: 20110127
  Transmission Date: 20110831
  Serious: No
  Sender: FDA-Public Use
  Company Number: US-ROXANE LABORATORIES, INC.-2011-RO-00116RO

PATIENT
  Sex: Female

DRUGS (2)
  1. PREDNISONE [Suspect]
  2. UN-BLINDED STUDY THERAPY [Concomitant]

REACTIONS (1)
  - HALLUCINATION [None]
